FAERS Safety Report 9028917 (Version 1)
Quarter: 2013Q1

REPORT INFORMATION
  Report Type: Spontaneous
  Country: SA (occurrence: SA)
  Receive Date: 20130124
  Receipt Date: 20130124
  Transmission Date: 20140127
  Serious: Yes (Life-Threatening)
  Sender: FDA-Public Use
  Company Number: SA-ABBOTT-13P-259-1038982-00

PATIENT
  Age: 33 Year
  Sex: Female

DRUGS (3)
  1. HUMIRA [Suspect]
     Indication: CROHN^S DISEASE
     Route: 058
  2. AZATHIOPRINE [Concomitant]
  3. MESALAMINE [Concomitant]

REACTIONS (1)
  - Breast cancer [Unknown]
